FAERS Safety Report 21330634 (Version 1)
Quarter: 2022Q3

REPORT INFORMATION
  Report Type: Spontaneous
  Country: US (occurrence: None)
  Receive Date: 20220913
  Receipt Date: 20220913
  Transmission Date: 20221026
  Serious: No
  Sender: FDA-Public Use
  Company Number: None

PATIENT
  Age: 56 Year
  Sex: Female

DRUGS (4)
  1. CAPECITABINE [Suspect]
     Active Substance: CAPECITABINE
     Indication: Breast cancer female
     Dosage: OTHER QUANTITY : 1000-1500MG;?FREQUENCY : TWICE A DAY;?
     Route: 048
     Dates: end: 20220912
  2. ALEVE [Concomitant]
     Active Substance: NAPROXEN SODIUM
  3. FASLODEX [Concomitant]
     Active Substance: FULVESTRANT
  4. LETROZOLE [Concomitant]
     Active Substance: LETROZOLE

REACTIONS (2)
  - Tumour marker increased [None]
  - Therapy cessation [None]
